FAERS Safety Report 23729423 (Version 2)
Quarter: 2024Q2

REPORT INFORMATION
  Report Type: Spontaneous
  Country: US (occurrence: US)
  Receive Date: 20240410
  Receipt Date: 20240516
  Transmission Date: 20240716
  Serious: No
  Sender: FDA-Public Use
  Company Number: US-LUNDBECK-DKLU3075920

PATIENT
  Age: 65 Year
  Sex: Female
  Weight: 85.59 kg

DRUGS (12)
  1. NORTHERA [Suspect]
     Active Substance: DROXIDOPA
     Indication: Orthostatic hypotension
     Route: 048
  2. NORTHERA [Suspect]
     Active Substance: DROXIDOPA
     Route: 048
  3. NORTHERA [Suspect]
     Active Substance: DROXIDOPA
     Dosage: AS NEEDED
     Route: 048
  4. FAMOTIDINE [Concomitant]
     Active Substance: FAMOTIDINE
     Indication: Product used for unknown indication
     Route: 065
  5. CHOLESTYRAMINE [Concomitant]
     Active Substance: CHOLESTYRAMINE
     Indication: Product used for unknown indication
     Route: 065
  6. THERACRAN [Concomitant]
     Indication: Product used for unknown indication
     Route: 065
  7. ONDANSETRON HYDROCHLORIDE [Concomitant]
     Active Substance: ONDANSETRON HYDROCHLORIDE
     Indication: Product used for unknown indication
     Route: 065
  8. METAMUCIL [Concomitant]
     Active Substance: PLANTAGO SEED
     Indication: Product used for unknown indication
     Route: 065
  9. TRULANCE [Concomitant]
     Active Substance: PLECANATIDE
     Indication: Product used for unknown indication
     Route: 065
  10. VITAMIN D3 [Concomitant]
     Active Substance: CHOLECALCIFEROL
     Indication: Product used for unknown indication
     Route: 065
  11. VITAMIN B12 [Concomitant]
     Active Substance: CYANOCOBALAMIN
     Indication: Product used for unknown indication
     Route: 065
  12. OMEPRAZOLE [Concomitant]
     Active Substance: DONEPEZIL HYDROCHLORIDE\OMEPRAZOLE\OMEPRAZOLE MAGNESIUM
     Indication: Product used for unknown indication
     Route: 065

REACTIONS (2)
  - Nasopharyngitis [Unknown]
  - Cough [Unknown]
